FAERS Safety Report 14751178 (Version 1)
Quarter: 2018Q2

REPORT INFORMATION
  Report Type: Spontaneous
  Country: US (occurrence: US)
  Receive Date: 20180412
  Receipt Date: 20180412
  Transmission Date: 20180711
  Serious: Yes (Death)
  Sender: FDA-Public Use
  Company Number: US-PFIZER INC-2018149829

PATIENT
  Age: 70 Year
  Sex: Male
  Weight: 77.11 kg

DRUGS (4)
  1. VFEND [Suspect]
     Active Substance: VORICONAZOLE
     Indication: BRONCHIECTASIS
     Dosage: UNK
     Dates: start: 2016, end: 201801
  2. VFEND [Suspect]
     Active Substance: VORICONAZOLE
     Indication: PULMONARY MYCOSIS
  3. VFEND [Suspect]
     Active Substance: VORICONAZOLE
     Indication: ASPERGILLUS INFECTION
  4. VFEND [Suspect]
     Active Substance: VORICONAZOLE
     Indication: LUNG DISORDER

REACTIONS (1)
  - Leukaemia recurrent [Fatal]

NARRATIVE: CASE EVENT DATE: 201711
